FAERS Safety Report 12178218 (Version 2)
Quarter: 2016Q1

REPORT INFORMATION
  Report Type: Spontaneous
  Country: IT (occurrence: IT)
  Receive Date: 20160315
  Receipt Date: 20160322
  Transmission Date: 20160526
  Serious: Yes (Death)
  Sender: FDA-Public Use
  Company Number: IT-ACCORD-038748

PATIENT
  Age: 66 Year
  Sex: Male
  Weight: 74 kg

DRUGS (8)
  1. PALONOSETRON [Concomitant]
     Active Substance: PALONOSETRON
     Dosage: STRENGTH: 250 UG
     Route: 042
  2. GEMCITABINE ACCORD [Suspect]
     Active Substance: GEMCITABINE HYDROCHLORIDE
     Indication: TRANSITIONAL CELL CARCINOMA
     Dosage: 1250 MG/M2?FIRST CHEMOTHERAPY G1 CYCLE
     Route: 042
     Dates: start: 20160223, end: 20160223
  3. MAGNESIUM SULFATE. [Concomitant]
     Active Substance: MAGNESIUM SULFATE
     Dosage: STRENGTH: 2000 MG
     Route: 042
  4. DEXAMETHASONE. [Concomitant]
     Active Substance: DEXAMETHASONE
     Dosage: STRENGTH: 12 MG
     Route: 042
  5. POTASSIUM [Concomitant]
     Active Substance: POTASSIUM
     Route: 042
  6. APREPITANT. [Concomitant]
     Active Substance: APREPITANT
     Dosage: STRENGTH: 125 MG
  7. LAMIVUDINE. [Concomitant]
     Active Substance: LAMIVUDINE
     Dosage: STRENGTH: 100 MG
     Dates: start: 20160215
  8. CISPLATIN TEVA [Suspect]
     Active Substance: CISPLATIN
     Indication: TRANSITIONAL CELL CARCINOMA
     Dosage: STRENGTH: 1MG/ML. 80 MG/M2?FIRST CHEMOTHERAPY G1 CYCLE
     Route: 042
     Dates: start: 20160223, end: 20160223

REACTIONS (1)
  - Gastrointestinal haemorrhage [Fatal]

NARRATIVE: CASE EVENT DATE: 20160225
